FAERS Safety Report 16376034 (Version 2)
Quarter: 2019Q2

REPORT INFORMATION
  Report Type: Spontaneous
  Country: IT (occurrence: IT)
  Receive Date: 20190531
  Receipt Date: 20190625
  Transmission Date: 20190711
  Serious: Yes (Other)
  Sender: FDA-Public Use
  Company Number: IT-ACCORD-130328

PATIENT
  Age: 74 Year
  Sex: Male
  Weight: 65 kg

DRUGS (5)
  1. IRINOTECAN [Suspect]
     Active Substance: IRINOTECAN
     Indication: ADENOCARCINOMA OF COLON
     Route: 042
     Dates: start: 20180507, end: 20190328
  2. RANITIDINE. [Concomitant]
     Active Substance: RANITIDINE
  3. FLUOROURACIL. [Suspect]
     Active Substance: FLUOROURACIL
     Indication: ADENOCARCINOMA OF COLON
     Dosage: ALSO REVEIVED 985.6 MG VIA INTRAVENOUS BOLUS
     Route: 042
     Dates: start: 20180507, end: 20190328
  4. CETUXIMAB. [Suspect]
     Active Substance: CETUXIMAB
     Indication: ADENOCARCINOMA OF COLON
     Route: 042
     Dates: start: 20180507, end: 20190328
  5. DEXAMETHASONE. [Concomitant]
     Active Substance: DEXAMETHASONE

REACTIONS (1)
  - Leukopenia [Recovering/Resolving]

NARRATIVE: CASE EVENT DATE: 20190410
